FAERS Safety Report 21422783 (Version 1)
Quarter: 2022Q4

REPORT INFORMATION
  Report Type: Spontaneous
  Country: JP (occurrence: None)
  Receive Date: 20221007
  Receipt Date: 20221007
  Transmission Date: 20230113
  Serious: Yes (Other)
  Sender: FDA-Public Use
  Company Number: 2022A335585

PATIENT
  Age: 71 Year
  Sex: Male
  Weight: 68 kg

DRUGS (9)
  1. DAPAGLIFLOZIN [Suspect]
     Active Substance: DAPAGLIFLOZIN
     Indication: Type 2 diabetes mellitus
     Dosage: 5 MG EVERY DAY IN THE MORNING
     Route: 048
  2. VALSARTAN [Concomitant]
     Active Substance: VALSARTAN
     Dosage: 160 MG EVERY DAY IN THE MORNING
     Route: 048
  3. FEBUXOSTAT [Concomitant]
     Active Substance: FEBUXOSTAT
     Dosage: 10 MG EVERY DAY IN THE MORNING
     Route: 048
  4. NIFEDIPINE [Concomitant]
     Active Substance: NIFEDIPINE
     Dosage: 60 MG TWO TIMES A DAY IN THE MORNING AND EVENING
     Route: 048
  5. NIFEDIPINE [Concomitant]
     Active Substance: NIFEDIPINE
     Dosage: 80 MG TWO TIMES A DAY IN THE MORNING AND EVENING
     Route: 048
  6. PREGABALIN [Concomitant]
     Active Substance: PREGABALIN
     Dosage: 150 MG TWO TIMES A DAY AFTER BREAKFAST AND BEFORE BEDTIME
     Route: 048
  7. BROTIZOLAM [Concomitant]
     Active Substance: BROTIZOLAM
     Dosage: 0.25 MG EVERY DAY BEFORE BEDTIME
     Route: 048
  8. DULOXETINE [Concomitant]
     Active Substance: DULOXETINE
     Dosage: 20 MG EVERY DAY, BEFORE BEDTIME
     Route: 048
  9. INSULIN NOS [Concomitant]
     Active Substance: INSULIN NOS
     Dosage: DOSE UNKNOWN
     Route: 065

REACTIONS (6)
  - Acute kidney injury [Unknown]
  - Blood pressure increased [Unknown]
  - Extremity contracture [Unknown]
  - Paralysis [Unknown]
  - Altered state of consciousness [Unknown]
  - Dehydration [Unknown]

NARRATIVE: CASE EVENT DATE: 20220101
